FAERS Safety Report 8419175-2 (Version None)
Quarter: 2012Q2

REPORT INFORMATION
  Report Type: 
  Country: None (occurrence: None)
  Receive Date: 20120601
  Receipt Date: 20120518
  Transmission Date: 20120825
  Serious: Yes (Hospitalization)
  Sender: FDA-Public Use
  Company Number: 2012000124

PATIENT
  Age: 46 Year
  Sex: Female

DRUGS (4)
  1. CELEXA [Concomitant]
  2. FINGOLIMOD HYDROCHLORIDE (FINGOLIMOD HYDROCHLORIDE) [Concomitant]
  3. ACEON [Suspect]
     Indication: HYPERTENSION
     Dosage: 4 MG, QD, ORAL, 8 MG, QD, ORAL
     Route: 048
     Dates: start: 20120101, end: 20120101
  4. ACEON [Suspect]
     Indication: HYPERTENSION
     Dosage: 4 MG, QD, ORAL, 8 MG, QD, ORAL
     Route: 048
     Dates: start: 20120101, end: 20120101

REACTIONS (2)
  - HYPERTENSION [None]
  - CHEST PAIN [None]
